FAERS Safety Report 5344429-6 (Version None)
Quarter: 2007Q2

REPORT INFORMATION
  Report Type: 
  Country: None (occurrence: None)
  Receive Date: 20070604
  Receipt Date: 20070131
  Transmission Date: 20071010
  Serious: Yes (Other)
  Sender: FDA-Public Use
  Company Number: JP-PFIZER INC-2007039132

PATIENT
  Age: 75 Year
  Sex: Female

DRUGS (1)
  1. MIGLITOL TABLET [Suspect]
     Dosage: DAILY DOSE:150MG
     Route: 048
     Dates: start: 20061017, end: 20061117

REACTIONS (1)
  - HEPATIC FUNCTION ABNORMAL [None]
